FAERS Safety Report 25682985 (Version 1)
Quarter: 2025Q3

REPORT INFORMATION
  Report Type: Spontaneous
  Country: GB (occurrence: GB)
  Receive Date: 20250814
  Receipt Date: 20250814
  Transmission Date: 20251021
  Serious: Yes (Other)
  Sender: ELI LILLY AND COMPANY
  Company Number: None

PATIENT
  Age: 59 Year
  Sex: Female

DRUGS (1)
  1. MOUNJARO [Suspect]
     Active Substance: TIRZEPATIDE
     Indication: Weight control
     Route: 065
     Dates: start: 20241001, end: 20241130

REACTIONS (6)
  - Gastritis [Recovered/Resolved with Sequelae]
  - Gastrointestinal microorganism overgrowth [Unknown]
  - Off label use [Unknown]
  - Gastrointestinal hypomotility [Unknown]
  - Nausea [Recovered/Resolved with Sequelae]
  - Flatulence [Not Recovered/Not Resolved]

NARRATIVE: CASE EVENT DATE: 20241008
